FAERS Safety Report 18699468 (Version 5)
Quarter: 2022Q3

REPORT INFORMATION
  Report Type: Spontaneous
  Country: US (occurrence: US)
  Receive Date: 20210104
  Receipt Date: 20220926
  Transmission Date: 20221027
  Serious: No
  Sender: FDA-Public Use
  Company Number: US-PFIZER INC-2020516630

PATIENT
  Age: 71 Year
  Sex: Female

DRUGS (5)
  1. XELJANZ XR [Suspect]
     Active Substance: TOFACITINIB CITRATE
     Indication: Rheumatoid arthritis
     Dosage: 11 MG, 1X/DAY (11MG TABLET BY MOUTH ONCE DAILY)
     Route: 048
     Dates: start: 2018
  2. XELJANZ XR [Suspect]
     Active Substance: TOFACITINIB CITRATE
     Dosage: 11 MG
     Dates: start: 20190901
  3. VIVELLE [Concomitant]
     Active Substance: ESTRADIOL
     Indication: Hormone therapy
     Dosage: UNK, (0.0375 MG PATCH 2X/WEEK)
  4. LEVOTHYROXINE [Concomitant]
     Active Substance: LEVOTHYROXINE
     Indication: Thyroid disorder
     Dosage: 50MCG TABLET BY MOUTH MONDAY THROUGH FRIDAY
     Route: 048
     Dates: start: 202006
  5. LEVOTHYROXINE [Concomitant]
     Active Substance: LEVOTHYROXINE
     Dosage: 100MCG TABLET BY MOUTH ON SATURDAY AND SUNDAY
     Route: 048
     Dates: start: 202006

REACTIONS (8)
  - Product dose omission issue [Unknown]
  - Influenza [Recovering/Resolving]
  - Alopecia [Unknown]
  - Spinal stenosis [Unknown]
  - Sciatica [Unknown]
  - Neck pain [Unknown]
  - Back pain [Unknown]
  - Hypoaesthesia [Unknown]

NARRATIVE: CASE EVENT DATE: 20201218
